FAERS Safety Report 24542314 (Version 1)
Quarter: 2024Q4

REPORT INFORMATION
  Report Type: Spontaneous
  Country: US (occurrence: US)
  Receive Date: 20241023
  Receipt Date: 20241023
  Transmission Date: 20250115
  Serious: Yes (Hospitalization, Other)
  Sender: NOVITIUM PHARMA
  Company Number: US-NOVITIUMPHARMA-2024USNVP02301

PATIENT
  Age: 43 Year
  Sex: Male

DRUGS (5)
  1. PREDNISONE [Suspect]
     Active Substance: PREDNISONE
     Indication: Bruton^s agammaglobulinaemia
     Route: 048
  2. PREDNISONE [Suspect]
     Active Substance: PREDNISONE
     Dosage: TAPERED
  3. SULFAMETHOXAZOLE\TRIMETHOPRIM [Suspect]
     Active Substance: SULFAMETHOXAZOLE\TRIMETHOPRIM
     Indication: Campylobacter bacteraemia
  4. Immune-globulin [Concomitant]
     Indication: Bruton^s agammaglobulinaemia
  5. VEDOLIZUMAB [Concomitant]
     Active Substance: VEDOLIZUMAB
     Indication: Bruton^s agammaglobulinaemia

REACTIONS (2)
  - Campylobacter bacteraemia [Recovered/Resolved]
  - Abdominal discomfort [Recovered/Resolved]
